FAERS Safety Report 25612499 (Version 1)
Quarter: 2025Q3

REPORT INFORMATION
  Report Type: Spontaneous
  Country: EU (occurrence: BR)
  Receive Date: 20250728
  Receipt Date: 20250728
  Transmission Date: 20251020
  Serious: Yes (Life-Threatening, Hospitalization)
  Sender: MYLAN
  Company Number: EU-STADA-01412424

PATIENT
  Age: 68 Year
  Sex: Male

DRUGS (7)
  1. VORICONAZOLE [Suspect]
     Active Substance: VORICONAZOLE
     Indication: Phaeohyphomycosis
     Dosage: 200 MILLIGRAM, BID
     Dates: start: 2022, end: 2022
  2. VORICONAZOLE [Suspect]
     Active Substance: VORICONAZOLE
     Indication: Phaeohyphomycosis
  3. TACROLIMUS [Suspect]
     Active Substance: TACROLIMUS
     Indication: Immunosuppressant drug therapy
  4. PREDNISONE [Concomitant]
     Active Substance: PREDNISONE
     Indication: Immunosuppressant drug therapy
     Dosage: 10 MILLIGRAM, QD
     Dates: end: 202204
  5. TERBINAFINE [Concomitant]
     Active Substance: TERBINAFINE
     Indication: Phaeohyphomycosis
     Dosage: 500 MILLIGRAM, QD
  6. ITRACONAZOLE [Concomitant]
     Active Substance: ITRACONAZOLE
     Indication: Phaeohyphomycosis
     Dosage: 200 MILLIGRAM, QD
     Dates: start: 202204
  7. POSACONAZOLE [Concomitant]
     Active Substance: POSACONAZOLE
     Indication: Phaeohyphomycosis

REACTIONS (3)
  - Therapeutic product effect decreased [Unknown]
  - Drug ineffective [Unknown]
  - Drug interaction [Unknown]
